FAERS Safety Report 10767601 (Version 2)
Quarter: 2015Q2

REPORT INFORMATION
  Report Type: Report from Study
  Country: BR (occurrence: BR)
  Receive Date: 20150205
  Receipt Date: 20150520
  Transmission Date: 20150821
  Serious: Yes (Hospitalization, Other)
  Sender: FDA-Public Use
  Company Number: BR-ABBVIE-15K-020-1330924-00

PATIENT
  Age: 28 Year
  Sex: Female
  Weight: 47 kg

DRUGS (4)
  1. MESALAZINE [Concomitant]
     Active Substance: MESALAMINE
     Indication: COLITIS ULCERATIVE
     Route: 048
     Dates: start: 20120101, end: 201501
  2. AZATHIOPRINE. [Concomitant]
     Active Substance: AZATHIOPRINE
     Indication: CROHN^S DISEASE
     Route: 048
     Dates: start: 20120101
  3. HUMIRA [Suspect]
     Active Substance: ADALIMUMAB
     Indication: CROHN^S DISEASE
     Route: 058
     Dates: start: 20120101, end: 201409
  4. HUMIRA [Suspect]
     Active Substance: ADALIMUMAB
     Route: 058
     Dates: start: 201412

REACTIONS (11)
  - Anal fistula [Not Recovered/Not Resolved]
  - Secretion discharge [Recovering/Resolving]
  - Vomiting [Recovered/Resolved]
  - Implant site extravasation [Unknown]
  - Diarrhoea [Recovering/Resolving]
  - Implant site pain [Recovering/Resolving]
  - Implant site oedema [Recovering/Resolving]
  - Vomiting [Recovering/Resolving]
  - Anal abscess [Not Recovered/Not Resolved]
  - Diarrhoea [Recovered/Resolved]
  - Implant site reaction [Recovering/Resolving]

NARRATIVE: CASE EVENT DATE: 2014
